FAERS Safety Report 8274517-6 (Version None)
Quarter: 2012Q2

REPORT INFORMATION
  Report Type: 
  Country: None (occurrence: None)
  Receive Date: 20120411
  Receipt Date: 20120327
  Transmission Date: 20120825
  Serious: Yes (Other)
  Sender: FDA-Public Use
  Company Number: IL-WATSON-2012-05943

PATIENT

DRUGS (1)
  1. TOPIRAMATE [Suspect]
     Indication: FOETAL EXPOSURE DURING PREGNANCY
     Dosage: 400 MG, DAILY
     Route: 064

REACTIONS (3)
  - HYPOCALCAEMIA [None]
  - FOETAL EXPOSURE DURING PREGNANCY [None]
  - CONVULSION NEONATAL [None]
